FAERS Safety Report 10021397 (Version 2)
Quarter: 2014Q2

REPORT INFORMATION
  Report Type: Spontaneous
  Country: US (occurrence: US)
  Receive Date: 20140319
  Receipt Date: 20140401
  Transmission Date: 20141212
  Serious: Yes (Hospitalization)
  Sender: FDA-Public Use
  Company Number: US-BEH-2014041054

PATIENT
  Sex: Female

DRUGS (1)
  1. HIZENTRA [Suspect]

REACTIONS (4)
  - Pneumonia [Unknown]
  - Respiratory disorder [Unknown]
  - Convulsion [Unknown]
  - Thrombosis [Unknown]
